FAERS Safety Report 13349705 (Version 1)
Quarter: 2017Q1

REPORT INFORMATION
  Report Type: Report from Study
  Country: CA (occurrence: CA)
  Receive Date: 20170320
  Receipt Date: 20170320
  Transmission Date: 20170429
  Serious: Yes (Hospitalization, Other)
  Sender: FDA-Public Use
  Company Number: CA-ROCHE-1779910

PATIENT
  Age: 73 Year
  Sex: Female

DRUGS (7)
  1. ESBRIET [Suspect]
     Active Substance: PIRFENIDONE
     Route: 048
     Dates: start: 2016
  2. ASA [Concomitant]
     Active Substance: ASPIRIN
  3. PANTOPRAZOLE [Concomitant]
     Active Substance: PANTOPRAZOLE SODIUM
  4. PAXIL (CANADA) [Concomitant]
  5. ESBRIET [Suspect]
     Active Substance: PIRFENIDONE
     Indication: IDIOPATHIC PULMONARY FIBROSIS
     Route: 048
     Dates: start: 20160618
  6. ESBRIET [Suspect]
     Active Substance: PIRFENIDONE
     Route: 048
     Dates: start: 201606
  7. VITAMIN B12 [Concomitant]
     Active Substance: CYANOCOBALAMIN

REACTIONS (20)
  - Panic attack [Unknown]
  - Asthenia [Not Recovered/Not Resolved]
  - Sputum discoloured [Recovering/Resolving]
  - Ill-defined disorder [Not Recovered/Not Resolved]
  - Hot flush [Not Recovered/Not Resolved]
  - Skin irritation [Not Recovered/Not Resolved]
  - Fibromyalgia [Unknown]
  - Fatigue [Recovering/Resolving]
  - Influenza [Unknown]
  - Malaise [Unknown]
  - Hyperventilation [Not Recovered/Not Resolved]
  - Tearfulness [Not Recovered/Not Resolved]
  - Vomiting [Unknown]
  - Dyspnoea [Not Recovered/Not Resolved]
  - Nausea [Not Recovered/Not Resolved]
  - Cystitis [Unknown]
  - Diarrhoea [Unknown]
  - Chest pain [Recovering/Resolving]
  - Sinus pain [Not Recovered/Not Resolved]
  - Wheezing [Not Recovered/Not Resolved]

NARRATIVE: CASE EVENT DATE: 2016
